FAERS Safety Report 9916250 (Version 3)
Quarter: 2014Q2

REPORT INFORMATION
  Report Type: Spontaneous
  Country: AR (occurrence: AR)
  Receive Date: 20140221
  Receipt Date: 20140509
  Transmission Date: 20141212
  Serious: Yes (Hospitalization)
  Sender: FDA-Public Use
  Company Number: AR-AMGEN-ARGSP2014011866

PATIENT
  Age: 5 Year
  Sex: Female

DRUGS (4)
  1. ENBREL [Suspect]
     Indication: JUVENILE IDIOPATHIC ARTHRITIS
     Dosage: 25 MG, WEEKLY
     Route: 058
     Dates: start: 20120801
  2. NAPROXEN [Concomitant]
     Dosage: 500 MG, 1X/DAY
     Route: 048
  3. METHOTREXATE [Concomitant]
     Dosage: 20 MG, WEEKLY
  4. FOLIC ACID [Concomitant]
     Dosage: 10 MG, WEEKLY
     Route: 048

REACTIONS (5)
  - Juvenile idiopathic arthritis [Recovered/Resolved]
  - White blood cell count increased [Not Recovered/Not Resolved]
  - Pyrexia [Recovered/Resolved]
  - Pain [Recovered/Resolved]
  - Malaise [Not Recovered/Not Resolved]
